FAERS Safety Report 22521957 (Version 1)
Quarter: 2023Q2

REPORT INFORMATION
  Report Type: Report from Study
  Country: US (occurrence: US)
  Receive Date: 20230605
  Receipt Date: 20230605
  Transmission Date: 20230722
  Serious: No
  Sender: FDA-Public Use
  Company Number: US-002147023-NVSC2023US120429

PATIENT
  Sex: Female

DRUGS (28)
  1. FLUTICASONE PROPIONATE [Suspect]
     Active Substance: FLUTICASONE PROPIONATE
     Indication: Eczema
     Dosage: UNK
     Route: 065
  2. FLUTICASONE PROPIONATE [Suspect]
     Active Substance: FLUTICASONE PROPIONATE
     Indication: Dermatitis atopic
  3. MONTELUKAST [Suspect]
     Active Substance: MONTELUKAST SODIUM
     Indication: Eczema
     Dosage: UNK
     Route: 065
  4. MONTELUKAST [Suspect]
     Active Substance: MONTELUKAST SODIUM
     Indication: Dermatitis atopic
  5. BETAMETHASONE DIPROPIONATE [Suspect]
     Active Substance: BETAMETHASONE DIPROPIONATE
     Indication: Dermatitis atopic
     Dosage: UNK
     Route: 065
  6. BETAMETHASONE DIPROPIONATE [Suspect]
     Active Substance: BETAMETHASONE DIPROPIONATE
     Indication: Eczema
  7. AIMOVIG [Suspect]
     Active Substance: ERENUMAB-AOOE
     Indication: Dermatitis atopic
     Dosage: UNK
     Route: 058
  8. AIMOVIG [Suspect]
     Active Substance: ERENUMAB-AOOE
     Indication: Eczema
  9. CLOBETASOL [Suspect]
     Active Substance: CLOBETASOL
     Indication: Dermatitis atopic
     Dosage: UNK
     Route: 065
  10. CLOBETASOL [Suspect]
     Active Substance: CLOBETASOL
     Indication: Eczema
  11. HYDROCORTISONE [Suspect]
     Active Substance: HYDROCORTISONE
     Indication: Dermatitis atopic
     Dosage: UNK
     Route: 065
  12. HYDROCORTISONE [Suspect]
     Active Substance: HYDROCORTISONE
     Indication: Eczema
  13. AZELASTINE [Suspect]
     Active Substance: AZELASTINE
     Indication: Dermatitis atopic
     Dosage: UNK
     Route: 065
  14. AZELASTINE [Suspect]
     Active Substance: AZELASTINE
     Indication: Eczema
  15. LEVOCETIRIZINE [Suspect]
     Active Substance: LEVOCETIRIZINE
     Indication: Dermatitis atopic
     Dosage: UNK
     Route: 065
  16. LEVOCETIRIZINE [Suspect]
     Active Substance: LEVOCETIRIZINE
     Indication: Eczema
  17. PREDNISONE [Suspect]
     Active Substance: PREDNISONE
     Indication: Dermatitis atopic
     Dosage: UNK
     Route: 065
  18. PREDNISONE [Suspect]
     Active Substance: PREDNISONE
     Indication: Eczema
  19. SERTRALINE [Suspect]
     Active Substance: SERTRALINE HYDROCHLORIDE
     Indication: Dermatitis atopic
     Dosage: UNK
     Route: 065
  20. SERTRALINE [Suspect]
     Active Substance: SERTRALINE HYDROCHLORIDE
     Indication: Eczema
  21. SUMATRIPTAN [Suspect]
     Active Substance: SUMATRIPTAN
     Indication: Dermatitis atopic
     Dosage: UNK
     Route: 065
  22. SUMATRIPTAN [Suspect]
     Active Substance: SUMATRIPTAN
     Indication: Eczema
  23. FLUCONAZOLE [Suspect]
     Active Substance: FLUCONAZOLE
     Indication: Dermatitis atopic
     Dosage: UNK
     Route: 065
  24. FLUCONAZOLE [Suspect]
     Active Substance: FLUCONAZOLE
     Indication: Eczema
  25. FLUTICASONE [Suspect]
     Active Substance: FLUTICASONE
     Indication: Dermatitis atopic
     Dosage: UNK
     Route: 065
  26. FLUTICASONE [Suspect]
     Active Substance: FLUTICASONE
     Indication: Eczema
  27. ELIDEL [Suspect]
     Active Substance: PIMECROLIMUS
     Indication: Dermatitis atopic
     Dosage: UNK
     Route: 065
  28. ELIDEL [Suspect]
     Active Substance: PIMECROLIMUS
     Indication: Eczema

REACTIONS (1)
  - Maternal exposure during pregnancy [Unknown]
